FAERS Safety Report 7171495-8 (Version None)
Quarter: 2010Q4

REPORT INFORMATION
  Report Type: 
  Country: None (occurrence: None)
  Receive Date: 20101217
  Receipt Date: 20101210
  Transmission Date: 20110411
  Serious: Yes (Other)
  Sender: FDA-Public Use
  Company Number: US-PFIZER INC-2010169422

PATIENT
  Sex: Female
  Weight: 63.492 kg

DRUGS (3)
  1. GEODON [Suspect]
     Indication: BIPOLAR DISORDER
     Dosage: 80 MG, DAILY
     Route: 048
     Dates: start: 20100101
  2. PAXIL [Concomitant]
     Indication: DEPRESSION
     Dosage: 20 MG, UNK
  3. KLONOPIN [Concomitant]
     Indication: ANXIETY
     Dosage: UNK

REACTIONS (3)
  - DRUG INTOLERANCE [None]
  - FLUSHING [None]
  - TREMOR [None]
